FAERS Safety Report 24618656 (Version 1)
Quarter: 2024Q4

REPORT INFORMATION
  Report Type: Spontaneous
  Country: CN (occurrence: CN)
  Receive Date: 20241114
  Receipt Date: 20241114
  Transmission Date: 20250115
  Serious: Yes (Other)
  Sender: AMGEN
  Company Number: CN-PFIZER INC-PV202400144612

PATIENT
  Age: 34 Year
  Sex: Female
  Weight: 55 kg

DRUGS (1)
  1. ENBREL [Suspect]
     Active Substance: ETANERCEPT
     Indication: Ankylosing spondylitis
     Dosage: 25 MG, 2X/WEEK
     Route: 041
     Dates: start: 20240924

REACTIONS (2)
  - Liver injury [Recovering/Resolving]
  - Hepatic function abnormal [Recovering/Resolving]

NARRATIVE: CASE EVENT DATE: 20241031
